FAERS Safety Report 6554681-7 (Version None)
Quarter: 2010Q1

REPORT INFORMATION
  Report Type: 
  Country: None (occurrence: None)
  Receive Date: 20100127
  Receipt Date: 20100114
  Transmission Date: 20100710
  Serious: No
  Sender: FDA-Public Use
  Company Number: US-B.I. PHARMACEUTICALS,INC./RIDGEFIELD-2010-BP-00477BP

PATIENT
  Age: 54 Year
  Sex: Female

DRUGS (4)
  1. CATAPRES-TTS-1 [Suspect]
     Indication: HYPERTENSION
     Dosage: 0.1 MG
     Route: 061
     Dates: start: 20091226
  2. LEVOTHYROXINE SODIUM [Concomitant]
     Indication: HYPOTHYROIDISM
  3. ALBUTEROL [Concomitant]
     Indication: ASTHMA
  4. LORAZEPAM [Concomitant]
     Indication: ANXIETY

REACTIONS (13)
  - ANXIETY [None]
  - APPLICATION SITE ERYTHEMA [None]
  - APPLICATION SITE PRURITUS [None]
  - ARTHRALGIA [None]
  - BLOOD PRESSURE INCREASED [None]
  - BONE PAIN [None]
  - CHEST DISCOMFORT [None]
  - CONSTIPATION [None]
  - DIARRHOEA [None]
  - DRY EYE [None]
  - DYSPNOEA [None]
  - MUSCULAR WEAKNESS [None]
  - NASAL DRYNESS [None]
